FAERS Safety Report 10311804 (Version 1)
Quarter: 2014Q3

REPORT INFORMATION
  Report Type: Report from Study
  Country: US (occurrence: US)
  Receive Date: 20140717
  Receipt Date: 20140717
  Transmission Date: 20150326
  Serious: Yes (Death, Hospitalization)
  Sender: FDA-Public Use
  Company Number: PHHY2014US087307

PATIENT
  Age: 33 Year
  Sex: Female
  Weight: 58.9 kg

DRUGS (1)
  1. ZYKADIA [Suspect]
     Active Substance: CERITINIB
     Indication: LUNG NEOPLASM MALIGNANT
     Dosage: 750 MG, QD
     Route: 048
     Dates: start: 20140620, end: 20140711

REACTIONS (9)
  - Acute respiratory distress syndrome [Unknown]
  - Death [Fatal]
  - Dyspnoea [Unknown]
  - Pyrexia [Unknown]
  - Respiratory distress [Unknown]
  - Pleural effusion [Unknown]
  - Chest pain [Unknown]
  - Hypoxia [Unknown]
  - Productive cough [Unknown]

NARRATIVE: CASE EVENT DATE: 20140712
